FAERS Safety Report 5315134-7 (Version None)
Quarter: 2007Q2

REPORT INFORMATION
  Report Type: 
  Country: None (occurrence: None)
  Receive Date: 20070502
  Receipt Date: 20070420
  Transmission Date: 20071010
  Serious: Yes (Other)
  Sender: FDA-Public Use
  Company Number: FR-PFIZER INC-2007028918

PATIENT
  Age: 52 Year
  Sex: Female

DRUGS (4)
  1. CHAMPIX [Suspect]
     Indication: SMOKING CESSATION THERAPY
  2. ZYBAN [Suspect]
     Dosage: TEXT:20 TABLETS
  3. CLARITIN [Suspect]
     Dosage: TEXT:15 TABLETS
  4. EFFEXOR [Suspect]
     Dosage: TEXT:10 TABLETS

REACTIONS (2)
  - RASH [None]
  - SUICIDE ATTEMPT [None]
